FAERS Safety Report 22625242 (Version 1)
Quarter: 2023Q2

REPORT INFORMATION
  Report Type: Spontaneous
  Country: US (occurrence: None)
  Receive Date: 20230616
  Receipt Date: 20230616
  Transmission Date: 20230721
  Serious: Yes (Death)
  Sender: FDA-Public Use
  Company Number: None

PATIENT
  Age: 59 Year
  Sex: Female
  Weight: 75.5 kg

DRUGS (1)
  1. TEMOZOLOMIDE [Suspect]
     Active Substance: TEMOZOLOMIDE
     Dates: end: 20230526

REACTIONS (8)
  - Disease progression [None]
  - Decreased appetite [None]
  - Hypersomnia [None]
  - Dysstasia [None]
  - Decubitus ulcer [None]
  - Hypophagia [None]
  - Product use complaint [None]
  - Speech disorder [None]

NARRATIVE: CASE EVENT DATE: 20230605
